FAERS Safety Report 7632454-1 (Version None)
Quarter: 2011Q3

REPORT INFORMATION
  Report Type: 
  Country: None (occurrence: None)
  Receive Date: 20110725
  Receipt Date: 20100913
  Transmission Date: 20111222
  Serious: Yes (Hospitalization, Other)
  Sender: FDA-Public Use
  Company Number: US-BRISTOL-MYERS SQUIBB COMPANY-15283690

PATIENT
  Age: 87 Year
  Sex: Female

DRUGS (5)
  1. COUMADIN [Suspect]
     Dosage: 7.5MG 5DAYS A WEEK+5MG 2DAYS A WEEK
  2. ZYRTEC [Concomitant]
  3. ATENOLOL [Concomitant]
  4. NEURONTIN [Concomitant]
  5. ISOSORBIDE MONONITRATE [Concomitant]

REACTIONS (5)
  - HAEMOGLOBIN DECREASED [None]
  - URTICARIA [None]
  - PROTHROMBIN TIME SHORTENED [None]
  - BLUE TOE SYNDROME [None]
  - HAEMORRHAGE [None]
